FAERS Safety Report 25388930 (Version 1)
Quarter: 2025Q2

REPORT INFORMATION
  Report Type: Spontaneous
  Country: FR (occurrence: FR)
  Receive Date: 20250603
  Receipt Date: 20250603
  Transmission Date: 20250716
  Serious: Yes (Other)
  Sender: ABBVIE
  Company Number: None

PATIENT
  Age: 23 Year
  Sex: Male

DRUGS (1)
  1. UPADACITINIB [Suspect]
     Active Substance: UPADACITINIB
     Indication: Inflammatory bowel disease
     Route: 048
     Dates: start: 20240801

REACTIONS (1)
  - Sperm concentration decreased [Not Recovered/Not Resolved]

NARRATIVE: CASE EVENT DATE: 20250215
